FAERS Safety Report 4726361-1 (Version None)
Quarter: 2005Q3

REPORT INFORMATION
  Report Type: 
  Country: None (occurrence: None)
  Receive Date: 20050725
  Receipt Date: 20050715
  Transmission Date: 20060218
  Serious: Yes (Congenital Anomaly)
  Sender: FDA-Public Use
  Company Number: 2005103696

PATIENT

DRUGS (1)
  1. CABERGOLINE [Suspect]
     Indication: BLOOD PROLACTIN INCREASED
     Dosage: (250 MG, THREE TIMES A WEEK), PLACENTAL
     Route: 064
     Dates: start: 20040804, end: 20041201

REACTIONS (3)
  - CONGENITAL ANOMALY [None]
  - DRUG EXPOSURE DURING PREGNANCY [None]
  - LIMB MALFORMATION [None]
